FAERS Safety Report 7521158-1 (Version None)
Quarter: 2011Q2

REPORT INFORMATION
  Report Type: 
  Country: None (occurrence: None)
  Receive Date: 20110603
  Receipt Date: 20101209
  Transmission Date: 20111010
  Serious: Yes (Other)
  Sender: FDA-Public Use
  Company Number: CA-BAYER-2010-003238

PATIENT
  Sex: Female

DRUGS (2)
  1. CIPRO [Suspect]
     Indication: BACTERIAL INFECTION
     Dosage: 500 MG, BID
     Dates: start: 19980101
  2. CIPRO [Suspect]
     Indication: CYSTITIS
     Dosage: UNK
     Dates: end: 20070101

REACTIONS (10)
  - OSTEOARTHRITIS [None]
  - MUSCLE ATROPHY [None]
  - MEMORY IMPAIRMENT [None]
  - ARTHROPATHY [None]
  - INSOMNIA [None]
  - FALL [None]
  - CHONDROPATHY [None]
  - JOINT INJURY [None]
  - MUSCLE DISORDER [None]
  - OSTEOPENIA [None]
